FAERS Safety Report 8417438-8 (Version None)
Quarter: 2012Q2

REPORT INFORMATION
  Report Type: 
  Country: None (occurrence: None)
  Receive Date: 20120606
  Receipt Date: 20120529
  Transmission Date: 20120825
  Serious: Yes (Other)
  Sender: FDA-Public Use
  Company Number: US-US-EMD SERONO, INC.-7098625

PATIENT
  Sex: Female
  Weight: 95 kg

DRUGS (5)
  1. METFORMIN HCL [Concomitant]
     Indication: DIABETES MELLITUS
  2. METFORMIN HCL [Concomitant]
  3. ANTI-RETROVIRALS [Concomitant]
     Indication: HIV INFECTION
  4. DIABETIC MEDICATIONS [Concomitant]
     Indication: DIABETES MELLITUS
     Route: 048
  5. EGRIFTA [Suspect]
     Indication: LIPODYSTROPHY ACQUIRED
     Route: 058
     Dates: start: 20110401, end: 20111101

REACTIONS (5)
  - PRURITUS [None]
  - VISION BLURRED [None]
  - FATIGUE [None]
  - BLOOD GLUCOSE INCREASED [None]
  - HEADACHE [None]
